FAERS Safety Report 7413470-1 (Version None)
Quarter: 2011Q2

REPORT INFORMATION
  Report Type: 
  Country: None (occurrence: None)
  Receive Date: 20110413
  Receipt Date: 20110404
  Transmission Date: 20111010
  Serious: Yes (Other)
  Sender: FDA-Public Use
  Company Number: PHHY2011VE28549

PATIENT
  Sex: Male

DRUGS (2)
  1. HYDREA [Concomitant]
     Indication: CHRONIC MYELOID LEUKAEMIA
     Dosage: UNK
     Route: 048
     Dates: start: 20110223
  2. GLEEVEC [Suspect]
     Indication: CHRONIC MYELOID LEUKAEMIA
     Dosage: UNK
     Route: 048
     Dates: start: 20110223

REACTIONS (2)
  - WHITE BLOOD CELL COUNT INCREASED [None]
  - DIZZINESS [None]
